FAERS Safety Report 6315092-2 (Version None)
Quarter: 2009Q3

REPORT INFORMATION
  Report Type: 
  Country: None (occurrence: None)
  Receive Date: 20090818
  Receipt Date: 20090818
  Transmission Date: 20100115
  Serious: Yes (Hospitalization)
  Sender: FDA-Public Use
  Company Number: None

PATIENT
  Sex: Female
  Weight: 84.5 kg

DRUGS (6)
  1. DECITABINE 20MG/M2 [Suspect]
     Indication: MYELODYSPLASTIC SYNDROME
     Dosage: DECITABINE 38MG DAYS 1-5 IV
     Route: 042
     Dates: start: 20090720
  2. DECITABINE 20MG/M2 [Suspect]
     Indication: MYELODYSPLASTIC SYNDROME
     Dosage: DECITABINE 38MG DAYS 1-5 IV
     Route: 042
     Dates: start: 20090721
  3. CYTARABINE [Suspect]
     Indication: MYELODYSPLASTIC SYNDROME
     Dosage: CYTARABINE 38MG DAYS 1-5 SC
     Route: 058
     Dates: start: 20090720
  4. CYTARABINE [Suspect]
     Indication: MYELODYSPLASTIC SYNDROME
     Dosage: CYTARABINE 38MG DAYS 1-5 SC
     Route: 058
     Dates: start: 20090721
  5. NEUPOGEN [Suspect]
     Indication: MYELODYSPLASTIC SYNDROME
     Dosage: GCSF 480MCG DAYS 1-5 SC
     Route: 058
     Dates: start: 20090720
  6. NEUPOGEN [Suspect]
     Indication: MYELODYSPLASTIC SYNDROME
     Dosage: GCSF 480MCG DAYS 1-5 SC
     Route: 058
     Dates: start: 20090721

REACTIONS (3)
  - CEREBRAL ARTERY OCCLUSION [None]
  - PLATELET COUNT DECREASED [None]
  - SUBARACHNOID HAEMORRHAGE [None]
